FAERS Safety Report 9465085 (Version 3)
Quarter: 2013Q4

REPORT INFORMATION
  Report Type: Spontaneous
  Country: US (occurrence: US)
  Receive Date: 20130819
  Receipt Date: 20131223
  Transmission Date: 20140711
  Serious: Yes (Hospitalization, Other)
  Sender: FDA-Public Use
  Company Number: US-009507513-1308USA008355

PATIENT
  Sex: Female
  Weight: 72.56 kg

DRUGS (1)
  1. NUVARING [Suspect]
     Indication: CONTRACEPTION
     Dosage: UNK
     Route: 067
     Dates: start: 2004, end: 201109

REACTIONS (11)
  - Convulsion [Unknown]
  - Pulmonary embolism [Recovered/Resolved]
  - Deep vein thrombosis [Recovering/Resolving]
  - Vitamin D deficiency [Unknown]
  - Foot deformity [Unknown]
  - Tendon injury [Unknown]
  - Knee operation [Unknown]
  - Haemangioma of liver [Unknown]
  - Renal cyst [Unknown]
  - Local swelling [Unknown]
  - Pain in extremity [Unknown]
